FAERS Safety Report 7711547-4 (Version None)
Quarter: 2011Q3

REPORT INFORMATION
  Report Type: 
  Country: None (occurrence: None)
  Receive Date: 20110826
  Receipt Date: 20110817
  Transmission Date: 20111222
  Serious: Yes (Other)
  Sender: FDA-Public Use
  Company Number: IE-JNJFOC-20110202816

PATIENT
  Sex: Male

DRUGS (3)
  1. ATACOR [Concomitant]
  2. MICARDIS [Concomitant]
  3. SIMPONI [Suspect]
     Indication: PSORIATIC ARTHROPATHY
     Route: 058
     Dates: start: 20101222

REACTIONS (1)
  - CHEST PAIN [None]
